FAERS Safety Report 8917080 (Version 1)
Quarter: 2012Q4

REPORT INFORMATION
  Report Type: 
  Country: US (occurrence: US)
  Receive Date: 20121120
  Receipt Date: 20121120
  Transmission Date: 20130627
  Serious: No
  Sender: FDA-Public Use
  Company Number: US-ALLERGAN-1214679US

PATIENT
  Age: 69 Year
  Sex: Male

DRUGS (4)
  1. LASTACAFT [Suspect]
     Indication: DRUG USE FOR UNKNOWN INDICATION
     Dosage: 1 Gtt OU, single
     Route: 047
     Dates: start: 20121021, end: 20121021
  2. LASTACAFT [Suspect]
     Dosage: UNK, single
     Route: 047
     Dates: start: 201204, end: 201204
  3. SIMVASTATIN [Concomitant]
     Indication: HIGH CHOLESTEROL
     Dosage: UNK
     Route: 048
  4. LISINOPRIL [Concomitant]
     Indication: HYPERTENSION
     Dosage: UNK
     Route: 048

REACTIONS (1)
  - Eye swelling [Unknown]
